FAERS Safety Report 5647635-6 (Version None)
Quarter: 2008Q1

REPORT INFORMATION
  Report Type: 
  Country: None (occurrence: None)
  Receive Date: 20080303
  Receipt Date: 20080222
  Transmission Date: 20080703
  Serious: Yes (Life-Threatening, Hospitalization)
  Sender: FDA-Public Use
  Company Number: GB-PFIZER INC-2008017798

PATIENT
  Sex: Female

DRUGS (3)
  1. CHANTIX [Suspect]
     Indication: SMOKING CESSATION THERAPY
  2. BECLOMETHASONE DIPROPIONATE [Concomitant]
     Route: 055
  3. ALBUTEROL [Concomitant]
     Route: 055

REACTIONS (3)
  - DYSPNOEA [None]
  - LIP SWELLING [None]
  - PHARYNGEAL OEDEMA [None]
